FAERS Safety Report 4686617-8 (Version None)
Quarter: 2005Q2

REPORT INFORMATION
  Report Type: 
  Country: None (occurrence: None)
  Receive Date: 20050609
  Receipt Date: 20050531
  Transmission Date: 20051028
  Serious: Yes (Hospitalization, Other)
  Sender: FDA-Public Use
  Company Number: US-BRISTOL-MYERS SQUIBB COMPANY-12989430

PATIENT
  Age: 68 Year
  Sex: Male
  Weight: 86 kg

DRUGS (1)
  1. CETUXIMAB [Suspect]
     Indication: NON-SMALL CELL LUNG CANCER
     Dosage: LOADING DOSE.
     Dates: start: 20050517, end: 20050517

REACTIONS (4)
  - BACK PAIN [None]
  - CYTOKINE RELEASE SYNDROME [None]
  - PLEURISY [None]
  - PULMONARY EMBOLISM [None]
